FAERS Safety Report 23897653 (Version 1)
Quarter: 2024Q2

REPORT INFORMATION
  Report Type: Spontaneous
  Country: US (occurrence: US)
  Receive Date: 20240524
  Receipt Date: 20240524
  Transmission Date: 20240715
  Serious: No
  Sender: FDA-Public Use
  Company Number: US-SLATERUN-2024SRSPO00047

PATIENT
  Age: 81 Year
  Sex: Female

DRUGS (1)
  1. PROMETHAZINE DM ORAL SOLUTION [Suspect]
     Active Substance: ALCOHOL\DEXTROMETHORPHAN HYDROBROMIDE\PROMETHAZINE HYDROCHLORIDE
     Indication: Product used for unknown indication
     Route: 065

REACTIONS (4)
  - Headache [Unknown]
  - Pain in extremity [Unknown]
  - Drug hypersensitivity [Unknown]
  - Dizziness [Unknown]
